FAERS Safety Report 18035475 (Version 1)
Quarter: 2020Q3

REPORT INFORMATION
  Report Type: Spontaneous
  Country: GB (occurrence: GB)
  Receive Date: 20200717
  Receipt Date: 20200717
  Transmission Date: 20201103
  Serious: Yes (Other)
  Sender: FDA-Public Use
  Company Number: GB-TEVA-2020-GB-1800846

PATIENT
  Age: 54 Year
  Sex: Male

DRUGS (3)
  1. FLUOXETINE [Suspect]
     Active Substance: FLUOXETINE HYDROCHLORIDE
     Dosage: 20 MG
     Route: 048
     Dates: start: 202006
  2. PROCHLORPERAZINE. [Concomitant]
     Active Substance: PROCHLORPERAZINE
     Indication: ILL-DEFINED DISORDER
  3. LYMECYCLINE [Concomitant]
     Active Substance: LYMECYCLINE
     Indication: ILL-DEFINED DISORDER

REACTIONS (3)
  - Agitation [Unknown]
  - Suicidal ideation [Unknown]
  - Suicidal behaviour [Unknown]
